FAERS Safety Report 15354675 (Version 2)
Quarter: 2018Q3

REPORT INFORMATION
  Report Type: Other
  Country: IT (occurrence: IT)
  Receive Date: 20180906
  Receipt Date: 20180922
  Transmission Date: 20181010
  Serious: Yes (Hospitalization, Other)
  Sender: FDA-Public Use
  Company Number: IT-MACLEODS PHARMACEUTICALS US LTD-MAC2018016493

PATIENT

DRUGS (7)
  1. VENLAFAXINE CAPSULES [Suspect]
     Active Substance: VENLAFAXINE HYDROCHLORIDE
     Indication: DRUG ABUSE
     Dosage: 8 DOSAGE FORM, SINGLE, PROLONGED?RELEASE CAPSULE, HARD
     Route: 048
     Dates: start: 20180708
  2. BROMAZEPAM [Suspect]
     Active Substance: BROMAZEPAM
     Indication: DRUG ABUSE
     Dosage: 20 MILLILITER, SINGLE, ORAL DROPS, SOLUTION
     Route: 048
     Dates: start: 20180708, end: 20180708
  3. TRIAZOLAM. [Suspect]
     Active Substance: TRIAZOLAM
     Indication: DRUG ABUSE
     Dosage: 30 DOSAGE FORM, SINGLE
     Route: 048
     Dates: start: 20180708, end: 20180708
  4. RAMIPRIL. [Suspect]
     Active Substance: RAMIPRIL
     Indication: DRUG ABUSE
     Dosage: 17.5 MILLIGRAM, SINGLE
     Route: 048
     Dates: start: 20180708
  5. ASPIRIN. [Suspect]
     Active Substance: ASPIRIN
     Indication: DRUG ABUSE
     Dosage: 2900 MILLIGRAM, SINGLE
     Route: 048
     Dates: start: 20180708
  6. PANTOPRAZOLE [Suspect]
     Active Substance: PANTOPRAZOLE
     Indication: DRUG ABUSE
     Dosage: 417.5 MILLIGRAM, SINGLE
     Route: 048
     Dates: start: 20180708
  7. AMITRIPTYLLINE TABLETS [Suspect]
     Active Substance: AMITRIPTYLINE
     Indication: DRUG ABUSE
     Dosage: 24 DOSAGE FORM, SINGLE, FILM?COATED TABLET
     Route: 048
     Dates: start: 20180708

REACTIONS (4)
  - Drug abuse [Unknown]
  - Sopor [Recovering/Resolving]
  - Overdose [Recovering/Resolving]
  - Confusional state [Recovering/Resolving]

NARRATIVE: CASE EVENT DATE: 20180708
